FAERS Safety Report 7913399-6 (Version None)
Quarter: 2011Q4

REPORT INFORMATION
  Report Type: 
  Country: None (occurrence: None)
  Receive Date: 20111115
  Receipt Date: 20111108
  Transmission Date: 20120403
  Serious: Yes (Hospitalization)
  Sender: FDA-Public Use
  Company Number: US-BIOGENIDEC-2009BI040466

PATIENT
  Age: 53 Year
  Sex: Female

DRUGS (4)
  1. AVONEX [Suspect]
     Route: 030
     Dates: start: 20110724
  2. AVONEX [Suspect]
     Indication: MULTIPLE SCLEROSIS
     Route: 030
     Dates: start: 20090526
  3. AVONEX [Suspect]
     Route: 030
     Dates: start: 20001114, end: 20030701
  4. AVONEX [Suspect]
     Route: 030
     Dates: start: 20030801, end: 20051201

REACTIONS (2)
  - SCOLIOSIS [None]
  - SPINAL DISORDER [None]
